FAERS Safety Report 16796354 (Version 1)
Quarter: 2019Q3

REPORT INFORMATION
  Report Type: Report from Study
  Country: FR (occurrence: FR)
  Receive Date: 20190911
  Receipt Date: 20190911
  Transmission Date: 20191005
  Serious: Yes (Hospitalization)
  Sender: FDA-Public Use
  Company Number: FR-AMGEN-FRANI2019146003

PATIENT
  Age: 53 Year
  Sex: Male
  Weight: 51.3 kg

DRUGS (12)
  1. ETELCALCETIDE [Suspect]
     Active Substance: ETELCALCETIDE
     Indication: HYPERPARATHYROIDISM SECONDARY
     Dosage: 15 MILLIGRAM
     Route: 042
     Dates: start: 20171201
  2. ARANESP [Concomitant]
     Active Substance: DARBEPOETIN ALFA
     Dosage: 20-100 MICROGRAM
     Route: 042
     Dates: start: 20181116, end: 20190605
  3. FER [FERRIC HYDROXIDE POLYMALTOSE COMPLEX] [Concomitant]
     Active Substance: IRON POLYMALTOSE
     Dosage: 1 UNK
     Route: 042
     Dates: start: 20180406, end: 20181227
  4. CALCIDIA [Concomitant]
     Active Substance: CALCIUM CARBONATE
     Dosage: 1.54-4.64 GRAM
     Route: 048
     Dates: start: 20180628, end: 20190506
  5. INEXIUM [ESOMEPRAZOLE SODIUM] [Concomitant]
     Active Substance: ESOMEPRAZOLE SODIUM
     Dosage: 20-40 MILLIGRAM
     Route: 048
     Dates: start: 20181126, end: 20190605
  6. UN-ALFA [Concomitant]
     Active Substance: ALFACALCIDOL
     Dosage: 1 MICROGRAM AND 1-2 UNK
     Dates: start: 20161010, end: 20190501
  7. BARACLUDE [Concomitant]
     Active Substance: ENTECAVIR
     Dosage: 5 MICROGRAM
     Route: 048
     Dates: start: 20180314, end: 20190605
  8. KAYEXALATE [Concomitant]
     Active Substance: SODIUM POLYSTYRENE SULFONATE
     Dosage: 22.5 GRAM
     Route: 048
     Dates: start: 20131118, end: 20190605
  9. CEFTRIAXONE. [Concomitant]
     Active Substance: CEFTRIAXONE
     Dosage: 2 GRAM
     Route: 042
     Dates: start: 20190204, end: 20190212
  10. LOVENOX [Concomitant]
     Active Substance: ENOXAPARIN SODIUM
     Dosage: 6000 INTERNATIONAL UNIT
     Route: 042
     Dates: start: 20160305, end: 20190605
  11. UVEDOSE [Concomitant]
     Active Substance: CHOLECALCIFEROL
     Dosage: 100000 INTERNATIONAL UNIT
     Route: 048
     Dates: start: 20131118, end: 20190605
  12. PARACETAMOL [Concomitant]
     Active Substance: ACETAMINOPHEN
     Dosage: 1 GRAM
     Route: 042
     Dates: start: 20160325, end: 20190605

REACTIONS (1)
  - Atrial fibrillation [Recovered/Resolved]

NARRATIVE: CASE EVENT DATE: 20190225
